FAERS Safety Report 11441095 (Version 1)
Quarter: 2015Q3

REPORT INFORMATION
  Report Type: Spontaneous
  Country: US (occurrence: None)
  Receive Date: 20150831
  Receipt Date: 20150831
  Transmission Date: 20151125
  Serious: Yes (Other)
  Sender: FDA-Public Use
  Company Number: None

PATIENT
  Age: 62 Year
  Sex: Male
  Weight: 122.02 kg

DRUGS (2)
  1. CENTRUM SILVER VITAMINS [Concomitant]
  2. SIMVASTATIN. [Suspect]
     Active Substance: SIMVASTATIN
     Dosage: 1 PILL A DAY  ONCE DAILY  TAKEN BY MOUTH
     Route: 048

REACTIONS (2)
  - Muscle atrophy [None]
  - Amnesia [None]
